FAERS Safety Report 16562548 (Version 1)
Quarter: 2019Q3

REPORT INFORMATION
  Report Type: Spontaneous
  Country: CA (occurrence: CA)
  Receive Date: 20190711
  Receipt Date: 20190711
  Transmission Date: 20191004
  Serious: Yes (Hospitalization, Other)
  Sender: FDA-Public Use
  Company Number: CA-TEVA-2019-CA-1074069

PATIENT
  Age: 65 Year
  Sex: Male

DRUGS (3)
  1. CYCLOSPORINE. [Suspect]
     Active Substance: CYCLOSPORINE
     Indication: IMMUNOSUPPRESSANT DRUG THERAPY
     Route: 065
  2. AZATHIOPRINE. [Suspect]
     Active Substance: AZATHIOPRINE
     Indication: IMMUNOSUPPRESSANT DRUG THERAPY
     Route: 065
  3. PREDNISONE. [Suspect]
     Active Substance: PREDNISONE
     Indication: IMMUNOSUPPRESSANT DRUG THERAPY
     Dosage: ON ALTERNATING DAYS
     Route: 065

REACTIONS (6)
  - Acarodermatitis [Recovered/Resolved]
  - Acute respiratory distress syndrome [Unknown]
  - Pneumonia [Unknown]
  - Staphylococcal infection [Unknown]
  - Sepsis [Unknown]
  - Enterococcal infection [Unknown]
